FAERS Safety Report 14734999 (Version 12)
Quarter: 2019Q2

REPORT INFORMATION
  Report Type: Spontaneous
  Country: CA (occurrence: CA)
  Receive Date: 20180409
  Receipt Date: 20190621
  Transmission Date: 20190711
  Serious: Yes (Other)
  Sender: FDA-Public Use
  Company Number: CA-CELLTRION INC.-2017CA015610

PATIENT

DRUGS (22)
  1. INFLECTRA [Suspect]
     Active Substance: INFLIXIMAB-DYYB
     Indication: COLITIS ULCERATIVE
     Dosage: 567 MG, EVERY 0,2,6 WEEKS, THEN EVERY 8 WEEKS
     Route: 042
     Dates: start: 20170323, end: 20171020
  2. INFLECTRA [Suspect]
     Active Substance: INFLIXIMAB-DYYB
     Dosage: 1120 MG, EVERY 6 WEEKS
     Route: 042
     Dates: start: 20180912
  3. INFLECTRA [Suspect]
     Active Substance: INFLIXIMAB-DYYB
     Dosage: 1120 MG, EVERY 6 WEEKS
     Route: 042
     Dates: start: 20181212
  4. INFLECTRA [Suspect]
     Active Substance: INFLIXIMAB-DYYB
     Dosage: 1120 MG, EVERY 6 WEEKS
     Route: 042
     Dates: start: 20180509
  5. INFLECTRA [Suspect]
     Active Substance: INFLIXIMAB-DYYB
     Dosage: 1120 MG, EVERY 6 WEEKS
     Route: 042
     Dates: start: 20181031
  6. INFLECTRA [Suspect]
     Active Substance: INFLIXIMAB-DYYB
     Dosage: 1120 MG, EVERY 6 WEEKS
     Route: 042
     Dates: start: 20190606
  7. CORTIFOAM [Concomitant]
     Active Substance: HYDROCORTISONE ACETATE
     Indication: CONDITION AGGRAVATED
     Dosage: 1X/DAY, AS NEEDED
     Route: 054
     Dates: start: 201611
  8. INFLECTRA [Suspect]
     Active Substance: INFLIXIMAB-DYYB
     Dosage: 565 MG, EVERY 6 WEEKS
     Route: 042
     Dates: start: 20171204, end: 20180104
  9. INFLECTRA [Suspect]
     Active Substance: INFLIXIMAB-DYYB
     Dosage: 1120 MG,  EVERY 6 WEEKS
     Route: 042
     Dates: start: 20180801
  10. INFLECTRA [Suspect]
     Active Substance: INFLIXIMAB-DYYB
     Dosage: 565 MG, EVERY 6 WEEKS
     Route: 042
     Dates: start: 20171204, end: 20180104
  11. INFLECTRA [Suspect]
     Active Substance: INFLIXIMAB-DYYB
     Dosage: UNK
     Route: 042
     Dates: start: 20180328
  12. INFLECTRA [Suspect]
     Active Substance: INFLIXIMAB-DYYB
     Dosage: 1120 MG, EVERY 6 WEEKS
     Route: 042
     Dates: start: 20190425
  13. PERCOCET [Concomitant]
     Active Substance: ACETAMINOPHEN\OXYCODONE HYDROCHLORIDE
     Dosage: UNK
  14. INFLECTRA [Suspect]
     Active Substance: INFLIXIMAB-DYYB
     Dosage: 1120 MG, EVERY 6 WEEKS
     Route: 042
     Dates: start: 20180627
  15. INFLECTRA [Suspect]
     Active Substance: INFLIXIMAB-DYYB
     Dosage: 1120 MG, EVERY 6 WEEKS
     Route: 042
     Dates: start: 20190315
  16. GABAPENTIN. [Concomitant]
     Active Substance: GABAPENTIN
     Dosage: UNK
  17. SALOFALK [Concomitant]
     Dosage: 500 MG, 1X/DAY
     Dates: start: 2011
  18. IMURAN [Concomitant]
     Active Substance: AZATHIOPRINE
     Dosage: 200 MG, 1X/DAY
     Dates: start: 2013
  19. PERCOCET [Concomitant]
     Active Substance: ACETAMINOPHEN\OXYCODONE HYDROCHLORIDE
     Dosage: UNK
  20. INFLECTRA [Suspect]
     Active Substance: INFLIXIMAB-DYYB
     Dosage: 10 MG/KG, EVERY 6 WEEKS
     Route: 042
     Dates: start: 20180104
  21. INFLECTRA [Suspect]
     Active Substance: INFLIXIMAB-DYYB
     Dosage: 1120 MG, EVERY 6 WEEKS
     Route: 042
     Dates: start: 20180215
  22. INFLECTRA [Suspect]
     Active Substance: INFLIXIMAB-DYYB
     Dosage: 1120 MG, EVERY 6 WEEKS
     Route: 042
     Dates: start: 20190131

REACTIONS (10)
  - Cold sweat [Unknown]
  - Arthralgia [Unknown]
  - Condition aggravated [Recovering/Resolving]
  - Pyrexia [Recovered/Resolved]
  - Off label use [Unknown]
  - Product use issue [Unknown]
  - Blood pressure fluctuation [Unknown]
  - Erythema nodosum [Unknown]
  - Nasopharyngitis [Recovered/Resolved]
  - Pain [Unknown]

NARRATIVE: CASE EVENT DATE: 2017
